FAERS Safety Report 21688414 (Version 1)
Quarter: 2022Q4

REPORT INFORMATION
  Report Type: Spontaneous
  Country: TR (occurrence: TR)
  Receive Date: 20221206
  Receipt Date: 20221206
  Transmission Date: 20230113
  Serious: Yes (Other)
  Sender: FDA-Public Use
  Company Number: TR-WOCKHARDT BIO AG-2022WBA000205

PATIENT
  Age: 40 Year
  Sex: Female

DRUGS (1)
  1. AMOXICILLIN TRIHYDRATE [Suspect]
     Active Substance: AMOXICILLIN
     Indication: Tonsillitis
     Dosage: UNK
     Route: 048

REACTIONS (1)
  - Kounis syndrome [Recovered/Resolved]
